FAERS Safety Report 9528031 (Version 1)
Quarter: 2013Q1

REPORT INFORMATION
  Report Type: Spontaneous
  Country: US (occurrence: None)
  Receive Date: 20130329
  Receipt Date: 20130329
  Transmission Date: 20140127
  Serious: Yes (Other)
  Sender: FDA-Public Use
  Company Number: 1000042592

PATIENT
  Age: 92 Year
  Sex: Female

DRUGS (1)
  1. LINZESS [Suspect]
     Indication: CONSTIPATION
     Dosage: 145 MCG (145 MCG,1 IN 1 D),ORAL
     Route: 048
     Dates: start: 20130212

REACTIONS (2)
  - Feeling abnormal [None]
  - Drug effect increased [None]
